FAERS Safety Report 23239331 (Version 5)
Quarter: 2024Q4

REPORT INFORMATION
  Report Type: Spontaneous
  Country: US (occurrence: US)
  Receive Date: 20231129
  Receipt Date: 20241010
  Transmission Date: 20250114
  Serious: Yes (Hospitalization, Disabling, Other)
  Sender: SANOFI AVENTIS
  Company Number: US-SA-SAC20231122001223

PATIENT
  Age: 87 Year
  Sex: Female
  Weight: 57 kg

DRUGS (3)
  1. CAPRELSA [Suspect]
     Active Substance: VANDETANIB
     Indication: Thyroid cancer
     Dosage: 200 MG, QD
     Route: 048
     Dates: start: 20161110
  2. CAPRELSA [Suspect]
     Active Substance: VANDETANIB
     Dosage: 100MG 3X, DAILY
     Route: 048
  3. TYLENOL [Concomitant]
     Active Substance: ACETAMINOPHEN
     Indication: Pain
     Dosage: UNK

REACTIONS (16)
  - Neoplasm malignant [Unknown]
  - Thyroid cancer [Unknown]
  - Walking aid user [Unknown]
  - Muscular weakness [Unknown]
  - Fall [Unknown]
  - Tremor [Unknown]
  - Dysphonia [Unknown]
  - Hepatic lesion [Unknown]
  - Anxiety [Unknown]
  - Arthralgia [Unknown]
  - Joint swelling [Unknown]
  - Blood potassium decreased [Unknown]
  - Abdominal discomfort [Unknown]
  - Dry mouth [Unknown]
  - Diarrhoea [Unknown]
  - Intentional product misuse [Unknown]
